FAERS Safety Report 4880223-8 (Version None)
Quarter: 2006Q1

REPORT INFORMATION
  Report Type: 
  Country: None (occurrence: None)
  Receive Date: 20060111
  Receipt Date: 20051006
  Transmission Date: 20060701
  Serious: Yes (Hospitalization, Other)
  Sender: FDA-Public Use
  Company Number: 2005169408

PATIENT
  Age: 68 Year
  Sex: Female
  Weight: 96.6162 kg

DRUGS (3)
  1. BEXTRA [Suspect]
     Indication: OSTEOARTHRITIS
     Dates: start: 20040501, end: 20040501
  2. ALPHAGAN [Concomitant]
  3. LUMIGAN [Concomitant]

REACTIONS (23)
  - ASTHENIA [None]
  - ATELECTASIS [None]
  - CORNEAL EPITHELIUM DISORDER [None]
  - DIZZINESS [None]
  - DYSPHAGIA [None]
  - ENTROPION [None]
  - ERYTHEMA MULTIFORME [None]
  - EYE INFECTION STAPHYLOCOCCAL [None]
  - EYELID PTOSIS [None]
  - FATIGUE [None]
  - LICHENOID KERATOSIS [None]
  - LUNG INFILTRATION [None]
  - MIDDLE EAR EFFUSION [None]
  - NASAL OEDEMA [None]
  - PAIN IN EXTREMITY [None]
  - POSTNASAL DRIP [None]
  - PYREXIA [None]
  - STEVENS-JOHNSON SYNDROME [None]
  - TENDERNESS [None]
  - TOXIC EPIDERMAL NECROLYSIS [None]
  - TRICHIASIS [None]
  - VASCULITIC RASH [None]
  - VITILIGO [None]
